FAERS Safety Report 9508567 (Version 2)
Quarter: 2014Q1

REPORT INFORMATION
  Report Type: Spontaneous
  Country: US (occurrence: None)
  Receive Date: 20130305
  Receipt Date: 20140306
  Transmission Date: 20141002
  Serious: Yes (Other)
  Sender: FDA-Public Use
  Company Number: 163-21880-12083195

PATIENT
  Age: 63 Year
  Sex: Male
  Weight: 77.1 kg

DRUGS (17)
  1. REVLIMID (LENALIDOMIDE) (25 MILLIGRAM CAPSULES) [Suspect]
     Indication: PLASMA CELL MYELOMA
     Dosage: 25MG, 21 IN 28 D, PO
     Route: 048
     Dates: start: 200802, end: 201001
  2. LUMIGAN (BIMATOPROST) [Concomitant]
  3. VIAGRA (SILDENAFIL CITRATE) [Concomitant]
  4. POTASSIUM (POTASSIUM) [Concomitant]
  5. METFORMIN (METFORMIN) [Concomitant]
  6. TAMSULOSIN (TAMSULOSIN) [Concomitant]
  7. OXYCODONE - ACETAMINPHEN (OXYCOCET) [Concomitant]
  8. HYDROCODONE-ACETAMINOPHEN (VICODIN) [Concomitant]
  9. DORZOLAMIDE-TIMOLOL (GALENIC/DORZOLAMIDE/TIMOLOL) [Concomitant]
  10. ENDOCET (OXYCOCET) [Concomitant]
  11. BRIMONIDINE (BRIMONIDINE) [Concomitant]
  12. ACTOS (PIOGLITAZONE) [Concomitant]
  13. ZOMETA (ZOLEDRONIC ACID) [Concomitant]
  14. PERCOCET (OXYCOCET) [Concomitant]
  15. LOSARTAN POTASSIUM (LOSARTAN POTASSIUM) [Concomitant]
  16. ASPIRIN (ACETYLSALICYLIC ACID) [Concomitant]
  17. SUPRER BOWEL PREP (SUPREP BOWEL PREP) [Concomitant]

REACTIONS (6)
  - Seborrhoea [None]
  - Drug dose omission [None]
  - Diarrhoea [None]
  - Local swelling [None]
  - Pruritus [None]
  - Fatigue [None]
